FAERS Safety Report 9394930 (Version 1)
Quarter: 2013Q3

REPORT INFORMATION
  Report Type: Spontaneous
  Country: US (occurrence: US)
  Receive Date: 20130711
  Receipt Date: 20130711
  Transmission Date: 20140515
  Serious: Yes (Hospitalization)
  Sender: FDA-Public Use
  Company Number: US-ELI_LILLY_AND_COMPANY-US201307000743

PATIENT
  Age: 59 Year
  Sex: Female

DRUGS (5)
  1. CYMBALTA [Suspect]
     Indication: DEPRESSION
     Dosage: 60 MG, QD
     Dates: start: 2010
  2. SYNTHROID [Concomitant]
     Dosage: UNK, UNKNOWN
  3. LIPITOR [Concomitant]
     Dosage: UNK, UNKNOWN
  4. NORVASC [Concomitant]
     Dosage: UNK, UNKNOWN
  5. FUROSEMIDE [Concomitant]
     Dosage: UNK, UNKNOWN

REACTIONS (5)
  - Respiratory disorder [Unknown]
  - Drug withdrawal syndrome [Not Recovered/Not Resolved]
  - Crying [Not Recovered/Not Resolved]
  - Insomnia [Not Recovered/Not Resolved]
  - Feeling of despair [Not Recovered/Not Resolved]
